FAERS Safety Report 21835279 (Version 1)
Quarter: 2023Q1

REPORT INFORMATION
  Report Type: Spontaneous
  Country: JP (occurrence: JP)
  Receive Date: 20230109
  Receipt Date: 20230109
  Transmission Date: 20230418
  Serious: Yes (Hospitalization, Other)
  Sender: FDA-Public Use
  Company Number: JP-NOVOPROD-987632

PATIENT
  Age: 60 Year
  Sex: Female
  Weight: 40 kg

DRUGS (2)
  1. NOVORAPID [Suspect]
     Active Substance: INSULIN ASPART
     Indication: Type 1 diabetes mellitus
     Dosage: UNK (OVERDOSE)
     Route: 058
     Dates: start: 20221128, end: 20221129
  2. LEVEMIR [Suspect]
     Active Substance: INSULIN DETEMIR
     Indication: Type 1 diabetes mellitus
     Dosage: UNK (OVERDOSE)
     Route: 058
     Dates: start: 20221128, end: 20221129

REACTIONS (4)
  - Suicide attempt [Unknown]
  - Hypoglycaemic coma [Recovered/Resolved]
  - Intentional overdose [Unknown]
  - Intentional product misuse [Unknown]

NARRATIVE: CASE EVENT DATE: 20221129
